FAERS Safety Report 19614094 (Version 2)
Quarter: 2021Q3

REPORT INFORMATION
  Report Type: Spontaneous
  Country: US (occurrence: US)
  Receive Date: 20210727
  Receipt Date: 20210915
  Transmission Date: 20211014
  Serious: Yes (Hospitalization)
  Sender: FDA-Public Use
  Company Number: US-GW PHARMA-202107USGW03582

PATIENT

DRUGS (1)
  1. EPIDIOLEX [Suspect]
     Active Substance: CANNABIDIOL
     Indication: EPILEPSY
     Dosage: 280 MILLIGRAM, BID, NEW PRESCRIPTION ON FILE WITH DOSING OF 300 MG BID BUT NOT YET SHIPPED
     Route: 048
     Dates: start: 201902

REACTIONS (2)
  - Seizure [Unknown]
  - Decreased appetite [Unknown]

NARRATIVE: CASE EVENT DATE: 20210909
